FAERS Safety Report 4889178-3 (Version None)
Quarter: 2006Q1

REPORT INFORMATION
  Report Type: 
  Country: None (occurrence: None)
  Receive Date: 20060124
  Receipt Date: 20060112
  Transmission Date: 20060701
  Serious: Yes (Death, Other)
  Sender: FDA-Public Use
  Company Number: IT-JNJFOC-20050205573

PATIENT
  Sex: Female
  Weight: 60 kg

DRUGS (6)
  1. REOPRO [Suspect]
     Dosage: 04.0 ML IN 050 ML DILUENT AT 3.0 ML/H
     Route: 042
  2. REOPRO [Suspect]
     Indication: ACUTE MYOCARDIAL INFARCTION
     Route: 042
  3. RETEPLASE [Suspect]
     Indication: MYOCARDIAL INFARCTION
     Route: 042
  4. HEPARIN [Concomitant]
  5. HEPARIN [Concomitant]
  6. BETA BLOCKER [Concomitant]

REACTIONS (10)
  - ARTERIAL RUPTURE [None]
  - BRADYCARDIA [None]
  - CARDIAC ARREST [None]
  - CARDIOGENIC SHOCK [None]
  - DRUG INTERACTION [None]
  - GASTROINTESTINAL HAEMORRHAGE [None]
  - GENERAL PHYSICAL HEALTH DETERIORATION [None]
  - HYPOTONIA [None]
  - RETROPERITONEAL HAEMORRHAGE [None]
  - SHOCK HAEMORRHAGIC [None]
